FAERS Safety Report 4444540-8 (Version None)
Quarter: 2004Q3

REPORT INFORMATION
  Report Type: 
  Country: None (occurrence: None)
  Receive Date: 20040902
  Receipt Date: 20040825
  Transmission Date: 20050211
  Serious: Yes (Other)
  Sender: FDA-Public Use
  Company Number: 2004-08-1653

PATIENT

DRUGS (2)
  1. PEG-INTRON [Suspect]
     Dosage: 150 MCG SUBCUTANEOUS
     Route: 058
  2. REBETOL [Suspect]
     Dosage: 1200 MG QD ORAL
     Route: 047

REACTIONS (3)
  - ENDOCARDITIS [None]
  - NEUTROPHIL COUNT DECREASED [None]
  - SEPSIS [None]
